FAERS Safety Report 4631327-6 (Version None)
Quarter: 2005Q2

REPORT INFORMATION
  Report Type: 
  Country: None (occurrence: None)
  Receive Date: 20050406
  Receipt Date: 20050325
  Transmission Date: 20051028
  Serious: Yes (Hospitalization)
  Sender: FDA-Public Use
  Company Number: 2005-0008187

PATIENT
  Age: 31 Year
  Sex: Female
  Weight: 54.8852 kg

DRUGS (7)
  1. VIREAD [Suspect]
     Indication: HIV INFECTION
     Dosage: 300 MG, 1 IN 1 D, ORAL
     Route: 048
     Dates: start: 20030601, end: 20041116
  2. DDI EC (DIDANOSINE) [Concomitant]
  3. NELFINAVIR (NELFINAVIR) [Concomitant]
  4. VALACYCLOVIR HCL [Concomitant]
  5. FUROSEMIDE [Concomitant]
  6. FESO4 (IRON) [Concomitant]
  7. KCL (POTASSIUM CHLORIDE) [Concomitant]

REACTIONS (3)
  - ASCITES [None]
  - PYREXIA [None]
  - RENAL FAILURE [None]
